FAERS Safety Report 6866921-5 (Version None)
Quarter: 2010Q3

REPORT INFORMATION
  Report Type: 
  Country: None (occurrence: None)
  Receive Date: 20100722
  Receipt Date: 20100714
  Transmission Date: 20110219
  Serious: Yes (Life-Threatening)
  Sender: FDA-Public Use
  Company Number: MW-GILEAD-2010-0030376

PATIENT
  Sex: Female
  Weight: 59 kg

DRUGS (5)
  1. VIREAD [Suspect]
     Indication: HIV INFECTION
     Route: 048
     Dates: start: 20100702, end: 20100702
  2. ZIDOVUDINE [Concomitant]
     Indication: HIV INFECTION
     Dates: end: 20100702
  3. COMBIVIR [Concomitant]
     Indication: HIV INFECTION
     Dates: end: 20100703
  4. COTRIM [Concomitant]
     Indication: ANTIFUNGAL PROPHYLAXIS
     Dates: end: 20100702
  5. IRON FOLATE [Concomitant]
     Indication: ANAEMIA PROPHYLAXIS
     Dates: end: 20100702

REACTIONS (4)
  - ABASIA [None]
  - ANAEMIA [None]
  - IRON DEFICIENCY [None]
  - TACHYCARDIA [None]
